FAERS Safety Report 8107751 (Version 2)
Quarter: 2013Q2

REPORT INFORMATION
  Report Type: Spontaneous
  Country: US (occurrence: US)
  Receive Date: 20110826
  Receipt Date: 20130411
  Transmission Date: 20140414
  Serious: No
  Sender: FDA-Public Use
  Company Number: US-BIOGENIDEC-2011BI031938

PATIENT
  Sex: Female

DRUGS (2)
  1. AVONEX [Suspect]
     Indication: MULTIPLE SCLEROSIS
     Route: 030
     Dates: start: 201202
  2. AVONEX [Suspect]
     Indication: MULTIPLE SCLEROSIS
     Route: 030
     Dates: start: 20110228

REACTIONS (10)
  - Endometritis [Unknown]
  - Fibromyalgia [Unknown]
  - Attention deficit/hyperactivity disorder [Unknown]
  - Feeling of body temperature change [Unknown]
  - Disturbance in attention [Unknown]
  - Migraine [Unknown]
  - Memory impairment [Unknown]
  - Somnolence [Unknown]
  - Fatigue [Unknown]
  - Depression [Unknown]
